FAERS Safety Report 6100557-9 (Version None)
Quarter: 2009Q1

REPORT INFORMATION
  Report Type: 
  Country: None (occurrence: None)
  Receive Date: 20090303
  Receipt Date: 20090218
  Transmission Date: 20090719
  Serious: Yes (Death)
  Sender: FDA-Public Use
  Company Number: JP-ROCHE-616185

PATIENT
  Age: 63 Year
  Sex: Female

DRUGS (4)
  1. PEGASYS [Suspect]
     Indication: HEPATITIS C
     Route: 058
  2. COPEGUS [Suspect]
     Indication: HEPATITIS C
     Route: 048
  3. DIOVAN [Concomitant]
     Route: 048
  4. LOCHOL [Concomitant]
     Route: 048

REACTIONS (1)
  - CEREBELLAR HAEMORRHAGE [None]
